FAERS Safety Report 6730048-3 (Version None)
Quarter: 2010Q2

REPORT INFORMATION
  Report Type: 
  Country: None (occurrence: None)
  Receive Date: 20100512
  Receipt Date: 20100305
  Transmission Date: 20101027
  Serious: Yes (Other)
  Sender: FDA-Public Use
  Company Number: 1000011985

PATIENT
  Age: 58 Year
  Sex: Female

DRUGS (10)
  1. SAVELLA [Suspect]
     Indication: FIBROMYALGIA
     Dosage: ORAL
     Route: 048
  2. ZOCOR [Concomitant]
  3. IMITREX [Concomitant]
  4. NEXIUM [Concomitant]
  5. ZANAFELX [Concomitant]
  6. PROAIR HFA [Concomitant]
  7. ALLEGRA [Concomitant]
  8. ADVAIR DISKUS 100/50 [Concomitant]
  9. SINGULAIR [Concomitant]
  10. INDERAL [Concomitant]

REACTIONS (6)
  - ANGER [None]
  - CONFUSIONAL STATE [None]
  - CRYING [None]
  - DIZZINESS [None]
  - ORGASM ABNORMAL [None]
  - SUICIDAL IDEATION [None]
